FAERS Safety Report 7247371-9 (Version None)
Quarter: 2011Q1

REPORT INFORMATION
  Report Type: 
  Country: None (occurrence: None)
  Receive Date: 20110127
  Receipt Date: 20110117
  Transmission Date: 20110831
  Serious: Yes (Other)
  Sender: FDA-Public Use
  Company Number: PHHY2011CA00458

PATIENT
  Sex: Female

DRUGS (1)
  1. ZOLEDRONIC [Suspect]
     Indication: OSTEOPOROSIS
     Dosage: 5 MG, UNK
     Route: 042
     Dates: start: 20100202

REACTIONS (2)
  - FACIAL PAIN [None]
  - TOOTHACHE [None]
